FAERS Safety Report 4324747-0 (Version None)
Quarter: 2004Q1

REPORT INFORMATION
  Report Type: 
  Country: None (occurrence: None)
  Receive Date: 20040326
  Receipt Date: 20040318
  Transmission Date: 20041129
  Serious: Yes (Hospitalization, Other)
  Sender: FDA-Public Use
  Company Number: WAES 0403NLD00020

PATIENT
  Age: 69 Year
  Sex: Male

DRUGS (5)
  1. ASPIRIN CALCIUM [Concomitant]
     Route: 048
  2. COLCHICINE [Concomitant]
     Route: 048
  3. DIPYRIDAMOLE [Concomitant]
     Route: 048
  4. ENALAPRIL MALEATE [Concomitant]
     Route: 048
  5. ZOCOR [Suspect]
     Route: 048
     Dates: start: 20010816, end: 20020213

REACTIONS (1)
  - INTERSTITIAL LUNG DISEASE [None]
